FAERS Safety Report 8533866-4 (Version None)
Quarter: 2012Q3

REPORT INFORMATION
  Report Type: 
  Country: None (occurrence: None)
  Receive Date: 20120705
  Receipt Date: 20120628
  Transmission Date: 20120928
  Serious: Yes (Other)
  Sender: FDA-Public Use
  Company Number: 2012031474

PATIENT
  Age: 68 Year
  Sex: Female

DRUGS (3)
  1. CARIMUNE [Suspect]
     Indication: IDIOPATHIC THROMBOCYTOPENIC PURPURA
     Dosage: 21 GRAMS, 2 CONSECUTIVE DAYS EVERY 2-3 WEEKS, INTRAVENOUS
     Route: 042
     Dates: start: 20111205, end: 20111206
  2. CARIMUNE [Suspect]
     Indication: IDIOPATHIC THROMBOCYTOPENIC PURPURA
     Dosage: 21 GRAMS, 2 CONSECUTIVE DAYS EVERY 2-3 WEEKS, INTRAVENOUS
     Route: 042
     Dates: start: 20111219
  3. CARIMUNE [Suspect]
     Indication: IDIOPATHIC THROMBOCYTOPENIC PURPURA
     Dosage: 21 GRAMS, 2 CONSECUTIVE DAYS EVERY 2-3 WEEKS, INTRAVENOUS
     Route: 042
     Dates: start: 20111227, end: 20111228

REACTIONS (2)
  - TOOTH INFECTION [None]
  - TOOTH IMPACTED [None]
